FAERS Safety Report 23664062 (Version 2)
Quarter: 2024Q1

REPORT INFORMATION
  Report Type: Spontaneous
  Country: NO (occurrence: None)
  Receive Date: 20240322
  Receipt Date: 20240325
  Transmission Date: 20240410
  Serious: Yes (Hospitalization, Other)
  Sender: FDA-Public Use
  Company Number: 2024A069870

PATIENT
  Age: 29 Year
  Sex: Female

DRUGS (4)
  1. NEXIUM [Suspect]
     Active Substance: ESOMEPRAZOLE MAGNESIUM
     Indication: Gastrooesophageal reflux disease
     Dosage: 40 MG, QD (MORE FREQUENT USE LATELY)
     Route: 048
     Dates: start: 20230503, end: 20240206
  2. CYPROTERONE ACETATE\ETHINYL ESTRADIOL [Suspect]
     Active Substance: CYPROTERONE ACETATE\ETHINYL ESTRADIOL
     Indication: Contraception
     Dosage: 1 DF, QD
     Route: 048
     Dates: start: 20230503, end: 20240206
  3. HERBALS\HONEY [Suspect]
     Active Substance: HERBALS\HONEY
     Indication: Cough
     Dosage: UNK, 3/DAY
     Dates: start: 20240117, end: 20240124
  4. HERBALS\HONEY [Suspect]
     Active Substance: HERBALS\HONEY
     Indication: Cough
     Dosage: 133 MILLILITRE, 1/WEEK
     Dates: start: 20240117, end: 20240124

REACTIONS (4)
  - Hepatic necrosis [Recovering/Resolving]
  - Drug-induced liver injury [Recovering/Resolving]
  - Jaundice [Recovering/Resolving]
  - Pruritus [Recovering/Resolving]

NARRATIVE: CASE EVENT DATE: 20240204
